FAERS Safety Report 25024659 (Version 1)
Quarter: 2025Q1

REPORT INFORMATION
  Report Type: Spontaneous
  Country: US (occurrence: US)
  Receive Date: 20250228
  Receipt Date: 20250228
  Transmission Date: 20250408
  Serious: No
  Sender: EISAI
  Company Number: US-Eisai-EC-2025-183653

PATIENT
  Age: 76 Year
  Sex: Female
  Weight: 79.9 kg

DRUGS (1)
  1. LEQEMBI [Suspect]
     Active Substance: LECANEMAB-IRMB
     Indication: Dementia Alzheimer^s type

REACTIONS (1)
  - Headache [Recovered/Resolved]

NARRATIVE: CASE EVENT DATE: 20250124
